FAERS Safety Report 23173672 (Version 7)
Quarter: 2024Q3

REPORT INFORMATION
  Report Type: Report from Study
  Country: US (occurrence: US)
  Receive Date: 20231111
  Receipt Date: 20240821
  Transmission Date: 20241016
  Serious: Yes (Life-Threatening, Hospitalization, Other)
  Sender: SANDOZ
  Company Number: US-002147023-NVSC2020US329734

PATIENT
  Age: 26 Year
  Sex: Female
  Weight: 77 kg

DRUGS (19)
  1. ORENITRAM [Suspect]
     Active Substance: TREPROSTINIL
     Indication: Product used for unknown indication
     Dosage: UNK
     Route: 065
  2. TREPROSTINIL [Suspect]
     Active Substance: TREPROSTINIL
     Dosage: 70 NG/KG/ MIN, CONT
     Route: 042
     Dates: start: 20201119
  3. TREPROSTINIL [Suspect]
     Active Substance: TREPROSTINIL
     Dosage: 72 NG/KG/ MIN, CONT, FIRST SHIP DATE 11/19/2020
     Route: 042
  4. TREPROSTINIL [Suspect]
     Active Substance: TREPROSTINIL
     Dosage: UNK UNK, CONT, 22 NG/KG/MIN
     Route: 042
  5. TREPROSTINIL [Suspect]
     Active Substance: TREPROSTINIL
     Dosage: UNK UNK, CONT, 34 NG/KG/MIN
     Route: 042
  6. TREPROSTINIL [Suspect]
     Active Substance: TREPROSTINIL
     Dosage: UNK UNK, CONT, 40 NG/KG/MIN
     Route: 042
  7. TREPROSTINIL [Suspect]
     Active Substance: TREPROSTINIL
     Indication: Pulmonary arterial hypertension
     Dosage: UNK UNK, CONT, 6 NG/KG/MIN
     Route: 042
     Dates: start: 20201119
  8. TREPROSTINIL [Suspect]
     Active Substance: TREPROSTINIL
     Dosage: UNK UNK, CONT, 50 NG/KG/MIN
     Route: 042
  9. TREPROSTINIL [Suspect]
     Active Substance: TREPROSTINIL
     Dosage: UNK UNK, CONT, 50 NG/KG/MIN
     Route: 042
  10. TREPROSTINIL [Suspect]
     Active Substance: TREPROSTINIL
     Dosage: UNK UNK, CONT, 52.7 NG/KG/MIN
     Route: 042
  11. TREPROSTINIL [Suspect]
     Active Substance: TREPROSTINIL
     Dosage: UNK UNK, CONT, 52.7 NG/KG/MIN
     Route: 042
  12. TREPROSTINIL [Suspect]
     Active Substance: TREPROSTINIL
     Dosage: UNK UNK, CONT, 52.7 NG/KG/MIN
     Route: 042
  13. TREPROSTINIL [Suspect]
     Active Substance: TREPROSTINIL
     Dosage: UNK UNK, CONT, 52.7 NG/KG/MIN
     Route: 042
  14. TREPROSTINIL [Suspect]
     Active Substance: TREPROSTINIL
     Dosage: UNK, CONT, 70 NG/KG/MIN
     Route: 042
     Dates: start: 20201119
  15. TREPROSTINIL [Suspect]
     Active Substance: TREPROSTINIL
     Dosage: UNK UNK, CONT, 60.7 NG/KG/MIN
     Route: 042
  16. ADEMPAS [Concomitant]
     Active Substance: RIOCIGUAT
     Indication: Product used for unknown indication
     Dosage: UNK (ADEMPAS LAST SHIPPED ON 06 DEC 2022)
     Route: 065
  17. AMBRISENTAN [Concomitant]
     Active Substance: AMBRISENTAN
     Indication: Product used for unknown indication
     Dosage: UNK
     Route: 065
  18. SILDENAFIL CITRATE [Concomitant]
     Active Substance: SILDENAFIL CITRATE
     Indication: Product used for unknown indication
     Dosage: UNK
     Route: 065
  19. XARELTO [Concomitant]
     Active Substance: RIVAROXABAN
     Indication: Product used for unknown indication
     Dosage: UNK
     Route: 065

REACTIONS (58)
  - Oxygen saturation decreased [Unknown]
  - Loss of consciousness [Unknown]
  - Seizure [Unknown]
  - Vascular device infection [Unknown]
  - Device related infection [Unknown]
  - Head injury [Unknown]
  - White blood cell count increased [Unknown]
  - Heart rate increased [Unknown]
  - Infection [Unknown]
  - Chills [Unknown]
  - Central venous catheterisation [Unknown]
  - Fall [Unknown]
  - Pyrexia [Unknown]
  - Tinnitus [Unknown]
  - Nasopharyngitis [Unknown]
  - Dizziness [Unknown]
  - Vomiting [Unknown]
  - Nausea [Unknown]
  - Hospitalisation [Unknown]
  - Procedural pain [Unknown]
  - Hydrosalpinx [Unknown]
  - Sepsis [Unknown]
  - Osteomyelitis [Unknown]
  - Skin irritation [Unknown]
  - Blister [Unknown]
  - Movement disorder [Unknown]
  - Eating disorder [Unknown]
  - Musculoskeletal discomfort [Unknown]
  - Mobility decreased [Unknown]
  - Hypersensitivity [Unknown]
  - Sneezing [Unknown]
  - Cough [Unknown]
  - Gastrointestinal disorder [Unknown]
  - Migraine [Unknown]
  - Erythema [Unknown]
  - Urticaria [Unknown]
  - Peripheral swelling [Unknown]
  - COVID-19 [Unknown]
  - Sinusitis [Unknown]
  - Weight decreased [Unknown]
  - Pulmonary arterial pressure increased [Not Recovered/Not Resolved]
  - Dyspnoea [Not Recovered/Not Resolved]
  - Injection site haemorrhage [Unknown]
  - Catheter site erythema [Unknown]
  - Catheter site haemorrhage [Unknown]
  - Complication associated with device [Unknown]
  - Asthenia [Unknown]
  - Diarrhoea [Unknown]
  - Pruritus [Unknown]
  - Rash [Unknown]
  - Abdominal pain upper [Unknown]
  - Arthralgia [Unknown]
  - Myalgia [Unknown]
  - Catheter site discharge [Unknown]
  - Catheter site discharge [Unknown]
  - Medical device site discharge [Unknown]
  - Product leakage [Unknown]
  - Product container seal issue [Unknown]

NARRATIVE: CASE EVENT DATE: 20201208
